FAERS Safety Report 21355981 (Version 1)
Quarter: 2022Q3

REPORT INFORMATION
  Report Type: Spontaneous
  Country: US (occurrence: US)
  Receive Date: 20220920
  Receipt Date: 20220920
  Transmission Date: 20221027
  Serious: No
  Sender: FDA-Public Use
  Company Number: US-Teikoku Pharma USA-TPU2022-00865

PATIENT
  Sex: Male
  Weight: 77.180 kg

DRUGS (2)
  1. LIDOCAINE PATCH [Suspect]
     Active Substance: LIDOCAINE
     Indication: Arthralgia
     Route: 061
  2. LIDOCAINE PATCH [Suspect]
     Active Substance: LIDOCAINE
     Indication: Arthralgia

REACTIONS (6)
  - Application site erythema [Recovered/Resolved]
  - Application site swelling [Unknown]
  - Application site discolouration [Unknown]
  - Pain [Unknown]
  - Incorrect product administration duration [Unknown]
  - Therapeutic product effect incomplete [Unknown]
